FAERS Safety Report 8815979 (Version 1)
Quarter: 2012Q4

REPORT INFORMATION
  Report Type: Report from Study
  Country: US (occurrence: US)
  Receive Date: 20120928
  Receipt Date: 20120928
  Transmission Date: 20130627
  Serious: Yes (Hospitalization, Other)
  Sender: FDA-Public Use
  Company Number: US-ABBOTT-12P-163-0985554-00

PATIENT
  Sex: Female
  Weight: 81.72 kg

DRUGS (12)
  1. HUMIRA [Suspect]
     Indication: RHEUMATOID ARTHRITIS
     Dates: start: 201011, end: 201202
  2. HUMIRA [Suspect]
     Dates: start: 201204, end: 201204
  3. METHOTREXATE [Concomitant]
     Indication: RHEUMATOID ARTHRITIS
  4. CYMBALTA [Concomitant]
     Indication: FIBROMYALGIA
  5. LYRICA [Concomitant]
     Indication: FIBROMYALGIA
  6. AMOUR THYROID [Concomitant]
     Indication: THYROID DISORDER
  7. HYDROCHLOROQUINE [Concomitant]
     Indication: PAIN
  8. TRAMADOL [Concomitant]
     Indication: PAIN
  9. PREDNISONE [Concomitant]
     Indication: RHEUMATOID ARTHRITIS
  10. FOLIC ACID [Concomitant]
     Indication: RHEUMATOID ARTHRITIS
  11. FLONASE [Concomitant]
     Indication: HYPERSENSITIVITY
  12. METOPROLOL TARTRATE [Concomitant]
     Indication: HYPERTENSION

REACTIONS (2)
  - Intervertebral disc protrusion [Recovered/Resolved]
  - Intervertebral disc protrusion [Recovered/Resolved]
